FAERS Safety Report 21727261 (Version 1)
Quarter: 2022Q4

REPORT INFORMATION
  Report Type: Spontaneous
  Country: FR (occurrence: FR)
  Receive Date: 20221214
  Receipt Date: 20221214
  Transmission Date: 20230113
  Serious: Yes (Life-Threatening)
  Sender: FDA-Public Use
  Company Number: None

PATIENT
  Age: 78 Year
  Sex: Male
  Weight: 71 kg

DRUGS (6)
  1. ETOPOSIDE [Interacting]
     Active Substance: ETOPOSIDE
     Indication: B-cell lymphoma
     Dates: start: 20221002, end: 20221002
  2. CYCLOPHOSPHAMIDE [Interacting]
     Active Substance: CYCLOPHOSPHAMIDE
     Indication: B-cell lymphoma
     Dates: start: 20221002, end: 20221002
  3. METHYLPREDNISOLONE ACETATE [Interacting]
     Active Substance: METHYLPREDNISOLONE ACETATE
     Indication: Product used for unknown indication
     Dates: start: 20221002, end: 20221007
  4. VINCRISTINE SULFATE [Interacting]
     Active Substance: VINCRISTINE SULFATE
     Indication: B-cell lymphoma
     Dates: start: 20221002, end: 20221002
  5. RITUXIMAB [Interacting]
     Active Substance: RITUXIMAB
     Indication: B-cell lymphoma
     Dates: start: 20221002, end: 20221002
  6. ETOPOSIDE [Interacting]
     Active Substance: ETOPOSIDE
     Indication: B-cell lymphoma
     Dates: start: 20221002, end: 20221003

REACTIONS (2)
  - Drug interaction [Unknown]
  - Sepsis [Recovering/Resolving]

NARRATIVE: CASE EVENT DATE: 20221017
